FAERS Safety Report 7574474-1 (Version None)
Quarter: 2011Q2

REPORT INFORMATION
  Report Type: 
  Country: None (occurrence: None)
  Receive Date: 20110627
  Receipt Date: 20110621
  Transmission Date: 20111010
  Serious: Yes (Life-Threatening, Hospitalization)
  Sender: FDA-Public Use
  Company Number: IT-CEPHALON-2011003325

PATIENT
  Sex: Male
  Weight: 80 kg

DRUGS (4)
  1. DESAMETASONE FOSF [Concomitant]
     Dates: start: 20110617
  2. BENDAMUSTINE HCL [Suspect]
     Route: 042
     Dates: start: 20110531
  3. PREDNISONE [Concomitant]
     Dates: start: 20110613, end: 20110617
  4. OFATUMUMAB [Suspect]
     Route: 042
     Dates: start: 20110530

REACTIONS (2)
  - HYPERURICAEMIA [None]
  - HYPERCALCAEMIA [None]
